FAERS Safety Report 25055208 (Version 1)
Quarter: 2025Q1

REPORT INFORMATION
  Report Type: Spontaneous
  Country: US (occurrence: US)
  Receive Date: 20250308
  Receipt Date: 20250308
  Transmission Date: 20250409
  Serious: No
  Sender: SANOFI AVENTIS
  Company Number: US-SA-2025SA067227

PATIENT
  Sex: Female

DRUGS (1)
  1. DUPIXENT [Suspect]
     Active Substance: DUPILUMAB
     Indication: Multiple sclerosis
     Dosage: 300 MG, QOW
     Route: 058

REACTIONS (2)
  - Arthralgia [Unknown]
  - Product use in unapproved indication [Unknown]
